FAERS Safety Report 4859783-9 (Version None)
Quarter: 2005Q4

REPORT INFORMATION
  Report Type: 
  Country: None (occurrence: None)
  Receive Date: 20051219
  Receipt Date: 20050922
  Transmission Date: 20060501
  Serious: Yes (Death, Life-Threatening, Other)
  Sender: FDA-Public Use
  Company Number: PHBS2005JP15654

PATIENT
  Age: 44 Year
  Sex: Female
  Weight: 25 kg

DRUGS (10)
  1. TEGRETOL [Suspect]
     Indication: EPILEPSY
     Dosage: UNK, UNK
     Route: 048
     Dates: end: 20050719
  2. TEGRETOL [Suspect]
     Dosage: 800 MG/DAY
     Route: 048
     Dates: start: 20050725, end: 20050901
  3. TAKEPRON [Suspect]
     Indication: GASTRIC ULCER
     Route: 048
     Dates: start: 20050622, end: 20050929
  4. LASIX [Suspect]
     Indication: OEDEMA
     Dosage: 20 MG/DAY
     Route: 042
     Dates: start: 20050722, end: 20050806
  5. LASIX [Suspect]
     Dosage: 40 MG/DAY
     Route: 042
     Dates: start: 20051004
  6. LASIX [Suspect]
     Dosage: 10 MG/DAY
     Route: 048
     Dates: start: 20050809, end: 20050817
  7. LASIX [Suspect]
     Dosage: 15 MG/DAY
     Route: 048
     Dates: start: 20050908, end: 20050929
  8. THIOPENTAL SODIUM [Suspect]
     Route: 042
     Dates: start: 20050722, end: 20051023
  9. RIVOTRIL [Concomitant]
     Indication: EPILEPSY
     Route: 048
     Dates: start: 20050725, end: 20050907
  10. DORMICUM [Concomitant]
     Dates: start: 20050717, end: 20050721

REACTIONS (20)
  - APLASIA PURE RED CELL [None]
  - ARRHYTHMIA [None]
  - BLOOD PRESSURE DECREASED [None]
  - CARDIAC ARREST [None]
  - DRUG INTERACTION [None]
  - DYSPNOEA [None]
  - GASTRIC ULCER [None]
  - GASTRIC ULCER HAEMORRHAGE [None]
  - HAEMATOCRIT DECREASED [None]
  - HAEMOGLOBIN DECREASED [None]
  - IRON DEFICIENCY ANAEMIA [None]
  - JAUNDICE [None]
  - MEAN CELL HAEMOGLOBIN INCREASED [None]
  - MEAN CELL VOLUME INCREASED [None]
  - MULTI-ORGAN FAILURE [None]
  - NEOPLASM MALIGNANT [None]
  - OEDEMA [None]
  - RED BLOOD CELL COUNT DECREASED [None]
  - RENAL FAILURE [None]
  - URINE OUTPUT DECREASED [None]
